FAERS Safety Report 23267139 (Version 4)
Quarter: 2025Q1

REPORT INFORMATION
  Report Type: Spontaneous
  Country: US (occurrence: US)
  Receive Date: 20231206
  Receipt Date: 20250219
  Transmission Date: 20250408
  Serious: Yes (Other)
  Sender: PFIZER
  Company Number: US-PFIZER INC-2021524717

PATIENT
  Age: 78 Year
  Sex: Female
  Weight: 95.25 kg

DRUGS (1)
  1. PREMARIN [Suspect]
     Active Substance: ESTROGENS, CONJUGATED
     Route: 067

REACTIONS (2)
  - Musculoskeletal discomfort [Unknown]
  - Gait disturbance [Unknown]
